FAERS Safety Report 20690724 (Version 1)
Quarter: 2022Q2

REPORT INFORMATION
  Report Type: Spontaneous
  Country: US (occurrence: US)
  Receive Date: 20220408
  Receipt Date: 20220408
  Transmission Date: 20220721
  Serious: No
  Sender: FDA-Public Use
  Company Number: US-FERRINGPH-2021FE07927

PATIENT
  Age: 77 Year
  Sex: Male

DRUGS (1)
  1. FIRMAGON [Suspect]
     Active Substance: DEGARELIX ACETATE
     Indication: Product used for unknown indication
     Route: 065

REACTIONS (7)
  - Injection site mass [Not Recovered/Not Resolved]
  - Injection site swelling [Recovered/Resolved]
  - Injection site erythema [Not Recovered/Not Resolved]
  - Injection site warmth [Not Recovered/Not Resolved]
  - Injection site pruritus [Recovered/Resolved]
  - Injection site pain [Not Recovered/Not Resolved]
  - Injection site discomfort [Not Recovered/Not Resolved]

NARRATIVE: CASE EVENT DATE: 20211201
